FAERS Safety Report 5772932-3 (Version None)
Quarter: 2008Q2

REPORT INFORMATION
  Report Type: 
  Country: None (occurrence: None)
  Receive Date: 20080613
  Receipt Date: 20080611
  Transmission Date: 20081010
  Serious: Yes (Life-Threatening, Hospitalization, Disabling, Other)
  Sender: FDA-Public Use
  Company Number: US-GILEAD-2008-0016858

PATIENT
  Sex: Male

DRUGS (1)
  1. LETAIRIS [Suspect]

REACTIONS (1)
  - SEPSIS [None]
